FAERS Safety Report 17525512 (Version 1)
Quarter: 2020Q1

REPORT INFORMATION
  Report Type: Report from Study
  Country: US (occurrence: US)
  Receive Date: 20200310
  Receipt Date: 20200310
  Transmission Date: 20200409
  Serious: No
  Sender: FDA-Public Use
  Company Number: US-AGIOS-2002US01659

PATIENT

DRUGS (1)
  1. TIBSOVO [Suspect]
     Active Substance: IVOSIDENIB
     Indication: HEPATOBILIARY CANCER
     Dosage: 250MG, 2 TABLETS (500MG) DAILY
     Route: 048
     Dates: start: 20200113

REACTIONS (5)
  - Decreased appetite [Unknown]
  - Hot flush [Unknown]
  - Nausea [Unknown]
  - Off label use [Unknown]
  - Fatigue [Unknown]

NARRATIVE: CASE EVENT DATE: 20200113
